FAERS Safety Report 5718871-5 (Version None)
Quarter: 2008Q2

REPORT INFORMATION
  Report Type: 
  Country: None (occurrence: None)
  Receive Date: 20080423
  Receipt Date: 20080407
  Transmission Date: 20081010
  Serious: Yes (Hospitalization)
  Sender: FDA-Public Use
  Company Number: DSA_31696_2008

PATIENT
  Sex: Male

DRUGS (8)
  1. LORAZEPAM [Suspect]
     Dosage: (5.5 MG NOT THE PRESCRIBED AMOUNT,  ORAL)
     Route: 048
     Dates: start: 20080405, end: 20080405
  2. DIAZEPAM [Suspect]
     Dosage: (40 MG NOT THE PRESCRIBED AMOUNT.  ORAL)
     Route: 048
     Dates: start: 20080405, end: 20080405
  3. FLUNITRAZEPAM (FLUNITRAZEPAM) 1 MG [Suspect]
     Dosage: (0.5 MG NOT THE PRESCRIBED AMOUNT.  ORAL)
     Route: 048
     Dates: start: 20080405, end: 20080405
  4. HALDOL [Suspect]
     Dosage: 10 MG NOT THE PRESCRIBED AMOUNT.  ORAL)
     Route: 048
     Dates: start: 20080405, end: 20080405
  5. LEPONEX (LEPONEX - CLOZAPINE) (NOT SPECIFIED) [Suspect]
     Dosage: (250 MG NOT THE PRESCRIBED AMOUNT.  ORAL)
     Route: 048
     Dates: start: 20080405, end: 20080405
  6. MELPERONE (MELPERONE) 50 MG [Suspect]
     Dosage: (200 MG NOT THE PRESCRIBED AMOUNT.  ORAL
     Route: 048
     Dates: start: 20080405, end: 20080405
  7. SEROQUEL [Suspect]
     Dosage: (900 MG NOT THE PRESCRIBED AMOUNT.  ORAL)
     Route: 048
     Dates: start: 20080405, end: 20080405
  8. XIMOVAN (XIMOVAN - ZOPICLONE) 7.5 MG [Suspect]
     Dosage: (7.5 MG NOT THE PRESCRIBED AMOUNT.  ORAL)
     Route: 048
     Dates: start: 20080405, end: 20080405

REACTIONS (3)
  - HYPERTENSION [None]
  - TACHYCARDIA [None]
  - WRONG DRUG ADMINISTERED [None]
